FAERS Safety Report 7745242-2 (Version None)
Quarter: 2011Q3

REPORT INFORMATION
  Report Type: 
  Country: None (occurrence: None)
  Receive Date: 20110913
  Receipt Date: 20110902
  Transmission Date: 20111222
  Serious: Yes (Other)
  Sender: FDA-Public Use
  Company Number: CA-JNJFOC-20110808894

PATIENT
  Sex: Male
  Weight: 103 kg

DRUGS (5)
  1. REMICADE [Suspect]
     Indication: PSORIASIS
     Route: 042
     Dates: start: 20110803
  2. PREVACID [Concomitant]
  3. BENADRYL [Concomitant]
  4. CYCLOSPORINE [Concomitant]
     Dates: start: 20110101, end: 20110810
  5. HYDROCHLOROTHIAZIDE [Concomitant]

REACTIONS (3)
  - RASH VESICULAR [None]
  - SKIN CANCER [None]
  - DYSURIA [None]
